FAERS Safety Report 10250950 (Version 3)
Quarter: 2014Q2

REPORT INFORMATION
  Report Type: Spontaneous
  Country: JP (occurrence: JP)
  Receive Date: 20140620
  Receipt Date: 20140625
  Transmission Date: 20141212
  Serious: Yes (Life-Threatening)
  Sender: FDA-Public Use
  Company Number: JP-ROCHE-1322019

PATIENT
  Age: 63 Year
  Sex: Male
  Weight: 68 kg

DRUGS (13)
  1. MIRCERA [Suspect]
     Indication: NEPHROGENIC ANAEMIA
     Route: 042
     Dates: start: 20131217, end: 20131217
  2. FEBURIC [Concomitant]
     Route: 048
  3. DIART [Concomitant]
     Route: 048
  4. NORVASC [Concomitant]
     Route: 048
  5. PLAVIX [Concomitant]
     Route: 048
  6. NEXIUM [Concomitant]
     Route: 048
  7. GASMOTIN [Concomitant]
     Route: 048
  8. SIGMART [Concomitant]
     Route: 048
  9. KREMEZIN [Concomitant]
     Route: 048
  10. CARDENALIN [Concomitant]
     Route: 048
  11. LASIX [Concomitant]
     Route: 048
  12. PRECIPITATED CALCIUM CARBONATE [Concomitant]
     Route: 048
  13. SAMSCA [Concomitant]
     Dosage: DOSAGE UNCERTAIN
     Route: 048

REACTIONS (2)
  - Pruritus generalised [Recovered/Resolved]
  - Oedema [Recovered/Resolved]
